FAERS Safety Report 10148699 (Version 2)
Quarter: 2014Q2

REPORT INFORMATION
  Report Type: Spontaneous
  Country: US (occurrence: US)
  Receive Date: 20140501
  Receipt Date: 20140501
  Transmission Date: 20141212
  Serious: Yes (Other)
  Sender: FDA-Public Use
  Company Number: US-RB-063516-14

PATIENT
  Age: 35 Year
  Sex: Female

DRUGS (1)
  1. SUBOXONE FILM [Suspect]
     Indication: DRUG DEPENDENCE
     Dosage: 1/2 TO 1/4 OF FILM THREE TIMES A DAY
     Route: 060
     Dates: start: 20140121, end: 20140125

REACTIONS (5)
  - Wrong technique in drug usage process [Recovered/Resolved]
  - Convulsion [Unknown]
  - Chest discomfort [Recovered/Resolved]
  - Wheezing [Recovered/Resolved]
  - Dyspnoea [Recovered/Resolved]
